FAERS Safety Report 12001664 (Version 1)
Quarter: 2016Q1

REPORT INFORMATION
  Report Type: Spontaneous
  Country: US (occurrence: US)
  Receive Date: 20160204
  Receipt Date: 20160204
  Transmission Date: 20160526
  Serious: No
  Sender: FDA-Public Use
  Company Number: US-PERRIGO-15US004574

PATIENT
  Age: 75 Year
  Sex: Female
  Weight: 44.44 kg

DRUGS (1)
  1. IBUPROFEN. [Suspect]
     Active Substance: IBUPROFEN
     Indication: LIGAMENT SPRAIN
     Dosage: 200 MG, EVERY 4 TO6 HOURS
     Route: 048
     Dates: start: 20150426

REACTIONS (1)
  - Diarrhoea [Unknown]

NARRATIVE: CASE EVENT DATE: 20150429
